FAERS Safety Report 5835055-0 (Version None)
Quarter: 2008Q3

REPORT INFORMATION
  Report Type: 
  Country: None (occurrence: None)
  Receive Date: 20080805
  Receipt Date: 20080805
  Transmission Date: 20090109
  Serious: Yes (Hospitalization)
  Sender: FDA-Public Use
  Company Number: None

PATIENT
  Sex: Male
  Weight: 85.2 kg

DRUGS (1)
  1. TEMOZOLOMIDE [Suspect]
     Dosage: 6665 MG

REACTIONS (11)
  - BONE MARROW FAILURE [None]
  - CHILLS [None]
  - CONFUSIONAL STATE [None]
  - CONSTIPATION [None]
  - GROIN PAIN [None]
  - HYPOPHAGIA [None]
  - MENTAL STATUS CHANGES [None]
  - NAUSEA [None]
  - RASH [None]
  - RENAL FAILURE [None]
  - VOMITING [None]
